FAERS Safety Report 7954860-8 (Version None)
Quarter: 2011Q4

REPORT INFORMATION
  Report Type: 
  Country: None (occurrence: None)
  Receive Date: 20111202
  Receipt Date: 20111121
  Transmission Date: 20120403
  Serious: Yes (Death, Hospitalization)
  Sender: FDA-Public Use
  Company Number: AU-PERRIGO-11AU010205

PATIENT
  Age: 62 Year
  Sex: Female

DRUGS (3)
  1. TOPICAL STEROIDS [Suspect]
     Indication: UVEITIS
     Route: 061
  2. REGIONAL STERIODS [Suspect]
     Route: 065
  3. PREDNISOLONE SODIUM PHOSPHATE [Suspect]
     Indication: UVEITIS
     Dosage: 1 MG/KG, QD
     Route: 065

REACTIONS (1)
  - ENCEPHALITIS HERPES [None]
